FAERS Safety Report 23761293 (Version 1)
Quarter: 2024Q2

REPORT INFORMATION
  Report Type: Spontaneous
  Country: CN (occurrence: CN)
  Receive Date: 20240419
  Receipt Date: 20240419
  Transmission Date: 20240716
  Serious: Yes (Hospitalization, Other)
  Sender: FDA-Public Use
  Company Number: CN-AMNEAL PHARMACEUTICALS-2024-AMRX-01321

PATIENT
  Age: 43 Year
  Sex: Male

DRUGS (9)
  1. VANCOMYCIN [Suspect]
     Active Substance: VANCOMYCIN
     Indication: Endocarditis Q fever
     Dosage: 1 GRAM, EVERY 12HR
     Route: 065
  2. VANCOMYCIN [Suspect]
     Active Substance: VANCOMYCIN
     Dosage: 2 GRAM, EVERY 12HR
     Route: 065
  3. VANCOMYCIN [Suspect]
     Active Substance: VANCOMYCIN
     Dosage: 1 GRAM, EVERY 12HR
     Route: 065
  4. VANCOMYCIN [Suspect]
     Active Substance: VANCOMYCIN
     Dosage: 1 GRAM, EVERY 12HR
     Route: 065
  5. CEFTRIAXONE [Concomitant]
     Active Substance: CEFTRIAXONE\CEFTRIAXONE SODIUM
     Indication: Endocarditis Q fever
     Dosage: 2 GRAM, EVERY 12HR
     Route: 065
  6. DOXYCYCLINE [Concomitant]
     Active Substance: DOXYCYCLINE
     Indication: Endocarditis Q fever
     Dosage: 0.1 GRAM, EVERY 12HR
     Route: 065
  7. DOXYCYCLINE [Concomitant]
     Active Substance: DOXYCYCLINE
     Dosage: 0.1 GRAM, EVERY 12HR
     Route: 065
  8. HYDROXYCHLOROQUINE [Concomitant]
     Active Substance: HYDROXYCHLOROQUINE
     Indication: Endocarditis Q fever
     Dosage: 0.2 GRAM, EVERY 8HR
     Route: 065
  9. HYDROXYCHLOROQUINE [Concomitant]
     Active Substance: HYDROXYCHLOROQUINE
     Dosage: 0.2 GRAM, EVERY 8HR
     Route: 065

REACTIONS (1)
  - Liver injury [Recovering/Resolving]
